FAERS Safety Report 6506146-6 (Version None)
Quarter: 2009Q4

REPORT INFORMATION
  Report Type: 
  Country: None (occurrence: None)
  Receive Date: 20091218
  Receipt Date: 20091218
  Transmission Date: 20100525
  Serious: Yes (Other)
  Sender: FDA-Public Use
  Company Number: AU-PFIZER INC-2009292711

PATIENT
  Age: 76 Year
  Sex: Male

DRUGS (3)
  1. LIPITOR [Suspect]
     Dosage: 20 MG, UNK
  2. AVAPRO [Concomitant]
     Dosage: UNK
  3. DIABEX S.R. [Concomitant]
     Dosage: UNK

REACTIONS (2)
  - ASTHENIA [None]
  - MUSCLE ATROPHY [None]
